FAERS Safety Report 5600503-8 (Version None)
Quarter: 2008Q1

REPORT INFORMATION
  Report Type: 
  Country: None (occurrence: None)
  Receive Date: 20080111
  Receipt Date: 20070618
  Transmission Date: 20080703
  Serious: Yes (Other)
  Sender: FDA-Public Use
  Company Number: HQWYE298921JUL04

PATIENT
  Age: 51 Year
  Sex: Female
  Weight: 65.38 kg

DRUGS (2)
  1. PREMPRO [Suspect]
     Indication: HORMONE REPLACEMENT THERAPY
     Dosage: UNSPECIFIED, UNKNOWN
     Dates: start: 19980601, end: 19990701
  2. PREMPHASE 14/14 [Suspect]
     Indication: HORMONE THERAPY
     Dosage: UNSPECIFIED, UNKNOWN
     Dates: start: 19970701, end: 19980601

REACTIONS (1)
  - BREAST CANCER [None]
